FAERS Safety Report 4557268-0 (Version None)
Quarter: 2005Q1

REPORT INFORMATION
  Report Type: 
  Country: None (occurrence: None)
  Receive Date: 20050118
  Receipt Date: 20050107
  Transmission Date: 20050727
  Serious: Yes (Hospitalization)
  Sender: FDA-Public Use
  Company Number: 061-0981-M0000254

PATIENT
  Age: 62 Year
  Sex: Male

DRUGS (15)
  1. ATORVASTATIN (ATORVASTATIN) [Suspect]
     Indication: CORONARY ARTERY DISEASE
     Dosage: 10 MG (DAILY), ORAL
     Route: 048
     Dates: start: 19990728, end: 19990921
  2. ATORVASTATIN (ATORVASTATIN) [Suspect]
     Indication: HYPERLIPIDAEMIA
     Dosage: 10 MG (DAILY), ORAL
     Route: 048
     Dates: start: 19990728, end: 19990921
  3. ATORVASTATIN (ATORVASTATIN) [Suspect]
     Indication: CORONARY ARTERY DISEASE
     Dosage: 10 MG (DAILY), ORAL
     Route: 048
     Dates: start: 19990922
  4. ATORVASTATIN (ATORVASTATIN) [Suspect]
     Indication: HYPERLIPIDAEMIA
     Dosage: 10 MG (DAILY), ORAL
     Route: 048
     Dates: start: 19990922
  5. RANITIDINE HYDROCHLORIDE [Concomitant]
  6. DOCUSATE SODIUM W/SENNA (DOCUSATE SODIUM) [Concomitant]
  7. VERAPAMIL [Concomitant]
  8. PIROXICAM [Concomitant]
  9. ISOSORBIDE MONONITRATE [Concomitant]
  10. BECLOMETHASONE DIPROPIONATE [Concomitant]
  11. NITROGLYCERIN [Concomitant]
  12. NITRAZEPAM [Concomitant]
  13. PERPHEXILINE MALEATE (PERPHEXILINE MALEATE) [Concomitant]
  14. BIPERIDEN HYDROCHLORIDE TAB [Concomitant]
  15. CODEINE PHOSPHATE W/PARACETAMOL (CODEINE PHOSPHATE) [Concomitant]

REACTIONS (5)
  - CONSTIPATION [None]
  - DIVERTICULUM [None]
  - HAEMORRHOIDS [None]
  - MEGACOLON [None]
  - RECTAL HAEMORRHAGE [None]
